FAERS Safety Report 13392841 (Version 1)
Quarter: 2017Q1

REPORT INFORMATION
  Report Type: Spontaneous
  Country: CA (occurrence: CA)
  Receive Date: 20170331
  Receipt Date: 20170331
  Transmission Date: 20170429
  Serious: Yes (Other)
  Sender: FDA-Public Use
  Company Number: CA-TEVA-753428ACC

PATIENT
  Sex: Male
  Weight: 61 kg

DRUGS (4)
  1. CIPROFLOXACIN (CANNOT EXCLUDE FROM TEVA PRODUCT) [Suspect]
     Active Substance: CIPROFLOXACIN
     Indication: PRODUCT USED FOR UNKNOWN INDICATION
     Dates: start: 201701, end: 201702
  2. METRONIDAZOLE (CANNOT EXCLUDE FROM TEVA PRODUCT) [Suspect]
     Active Substance: METRONIDAZOLE
     Indication: PRODUCT USED FOR UNKNOWN INDICATION
     Dates: start: 201701, end: 201702
  3. AZATHIOPRINE (CANNOT EXCLUDE FROM TEVA PRODUCT) [Suspect]
     Active Substance: AZATHIOPRINE
     Indication: PRODUCT USED FOR UNKNOWN INDICATION
     Dates: start: 20170118
  4. PREDNISONE (CANNOT EXCLUDE FROM TEVA PRODUCT) [Suspect]
     Active Substance: PREDNISONE
     Indication: PRODUCT USED FOR UNKNOWN INDICATION
     Dates: start: 20170118

REACTIONS (1)
  - Hepatitis [Unknown]
